FAERS Safety Report 15545342 (Version 1)
Quarter: 2018Q4

REPORT INFORMATION
  Report Type: Spontaneous
  Country: US (occurrence: US)
  Receive Date: 20181017
  Receipt Date: 20181017
  Transmission Date: 20190205
  Serious: Yes (Other)
  Sender: FDA-Public Use
  Company Number: None

PATIENT

DRUGS (6)
  1. SAPHRIS [Suspect]
     Active Substance: ASENAPINE MALEATE
     Indication: ABNORMAL BEHAVIOUR
     Dosage: ?          QUANTITY:1 PILL;?
     Route: 060
  2. ALIVE MAX [Concomitant]
  3. SAPHRIS [Suspect]
     Active Substance: ASENAPINE MALEATE
     Indication: SLEEP DISORDER
     Dosage: ?          QUANTITY:1 PILL;?
     Route: 060
  4. SEROQUEL [Suspect]
     Active Substance: QUETIAPINE FUMARATE
  5. SAPHRIS [Suspect]
     Active Substance: ASENAPINE MALEATE
     Indication: STRESS
     Dosage: ?          QUANTITY:1 PILL;?
     Route: 060
  6. NATURES WAY ULTRA VITAMINS [Concomitant]

REACTIONS (11)
  - Pruritus generalised [None]
  - Flatulence [None]
  - Dysgeusia [None]
  - Loss of employment [None]
  - Eczema [None]
  - Sedation [None]
  - Impaired self-care [None]
  - Insomnia [None]
  - Loss of personal independence in daily activities [None]
  - Weight increased [None]
  - Product complaint [None]

NARRATIVE: CASE EVENT DATE: 20180926
